FAERS Safety Report 23154359 (Version 1)
Quarter: 2023Q4

REPORT INFORMATION
  Report Type: Spontaneous
  Country: CA (occurrence: CA)
  Receive Date: 20231107
  Receipt Date: 20231107
  Transmission Date: 20240110
  Serious: Yes (Hospitalization, Other)
  Sender: FDA-Public Use
  Company Number: CA-FreseniusKabi-FK202317457

PATIENT
  Age: 30 Year
  Sex: Female

DRUGS (6)
  1. SODIUM CHLORIDE [Suspect]
     Active Substance: SODIUM CHLORIDE
     Indication: Hypercalcaemia
     Dosage: DOSAGE FORM: NOT SPECIFIED
     Route: 042
  2. CALCITONIN [Suspect]
     Active Substance: CALCITONIN
     Indication: Hypercalcaemia
     Dosage: 4 IU/KG
     Route: 065
  3. CALCITONIN [Suspect]
     Active Substance: CALCITONIN
     Dosage: 4 IU/KG
     Route: 030
  4. CALCIUM CARBONATE [Suspect]
     Active Substance: CALCIUM CARBONATE
     Indication: Hypercalcaemia
     Route: 065
  5. CHOLECALCIFEROL [Suspect]
     Active Substance: CHOLECALCIFEROL
     Indication: Product used for unknown indication
     Dosage: 1000IU
     Route: 065
  6. ERGOCALCIFEROL [Suspect]
     Active Substance: ERGOCALCIFEROL
     Indication: Hypercalcaemia
     Dosage: 1000IU
     Route: 065

REACTIONS (9)
  - Blood calcium increased [Recovered/Resolved]
  - Blood creatinine increased [Recovered/Resolved]
  - Calculus urinary [Recovered/Resolved]
  - Diabetes insipidus [Recovered/Resolved]
  - Drug ineffective [Recovered/Resolved]
  - Hypercalcaemia [Recovered/Resolved]
  - Nephrocalcinosis [Recovered/Resolved]
  - Normal newborn [Recovered/Resolved]
  - Renal failure [Recovered/Resolved]
